FAERS Safety Report 9145689 (Version 1)
Quarter: 2013Q1

REPORT INFORMATION
  Report Type: Report from Study
  Country: SE (occurrence: SE)
  Receive Date: 20130307
  Receipt Date: 20130307
  Transmission Date: 20140127
  Serious: Yes (Life-Threatening, Hospitalization)
  Sender: FDA-Public Use
  Company Number: SE-BRISTOL-MYERS SQUIBB COMPANY-16676470

PATIENT
  Age: 65 Year
  Sex: Female

DRUGS (6)
  1. ORENCIA FOR INJ 250 MG/VIAL [Suspect]
     Indication: RHEUMATOID ARTHRITIS
     Route: 042
     Dates: start: 20101013, end: 20120206
  2. IMUREL [Suspect]
     Indication: RHEUMATOID ARTHRITIS
     Dosage: STRENGTH:IMUREL FILM COATED TABLETS 50 MG
     Route: 048
     Dates: start: 20050921, end: 20120308
  3. REMICADE [Suspect]
     Indication: RHEUMATOID ARTHRITIS
     Dosage: 20DEC07. LAST INF: 20MAY09?STRENGTH:REMICADE POWDER FOR CONCENTRATE FOR SOLUTION FOR INF 100 MG
     Route: 042
     Dates: start: 20071220
  4. HUMIRA [Suspect]
     Indication: RHEUMATOID ARTHRITIS
     Dosage: HUMIRA SOLUTION FOR INJECTION
     Route: 058
     Dates: start: 20090603
  5. MABTHERA [Concomitant]
     Dosage: 2 DOSES WERE GIVEN ON 21JAN10 AND 8FEB10
  6. PREDNISOLONE [Concomitant]

REACTIONS (1)
  - Breast cancer female [Unknown]
